FAERS Safety Report 4593850-2 (Version None)
Quarter: 2005Q1

REPORT INFORMATION
  Report Type: 
  Country: None (occurrence: None)
  Receive Date: 20050301
  Receipt Date: 20041206
  Transmission Date: 20050727
  Serious: Yes (Other)
  Sender: FDA-Public Use
  Company Number: 200419313US

PATIENT
  Age: 24 Year
  Sex: Male
  Weight: 77.3 kg

DRUGS (2)
  1. KETEK [Suspect]
     Indication: SINUSITIS
     Route: 048
     Dates: start: 20041115, end: 20041116
  2. ZYRTEC [Concomitant]
     Route: 048

REACTIONS (7)
  - BLINDNESS TRANSIENT [None]
  - DIPLOPIA [None]
  - MYDRIASIS [None]
  - NAUSEA [None]
  - VISION BLURRED [None]
  - VISUAL ACUITY REDUCED [None]
  - VISUAL BRIGHTNESS [None]
